FAERS Safety Report 17955839 (Version 8)
Quarter: 2024Q1

REPORT INFORMATION
  Report Type: Report from Study
  Country: US (occurrence: US)
  Receive Date: 20200629
  Receipt Date: 20240301
  Transmission Date: 20240409
  Serious: Yes (Other)
  Sender: FDA-Public Use
  Company Number: US-SHIRE-US202020895

PATIENT
  Sex: Female
  Weight: 93 kg

DRUGS (17)
  1. HUMAN IMMUNOGLOBULIN G\HYALURONIDASE RECOMBINANT HUMAN [Suspect]
     Active Substance: HUMAN IMMUNOGLOBULIN G\HYALURONIDASE (HUMAN RECOMBINANT)
     Indication: Immunodeficiency common variable
     Dosage: 40 GRAM, Q4WEEKS
     Route: 058
     Dates: start: 20191202
  2. ACETAMINOPHEN [Concomitant]
     Active Substance: ACETAMINOPHEN
  3. SODIUM CHLORIDE [Concomitant]
     Active Substance: SODIUM CHLORIDE
  4. EPINEPHRINE [Concomitant]
     Active Substance: EPINEPHRINE
  5. TOPIRAMATE [Concomitant]
     Active Substance: TOPIRAMATE
  6. MINERALS\VITAMINS [Concomitant]
     Active Substance: MINERALS\VITAMINS
  7. LYRICA [Concomitant]
     Active Substance: PREGABALIN
  8. ENALAPRIL MALEATE [Concomitant]
     Active Substance: ENALAPRIL MALEATE
     Dosage: UNK
     Route: 065
  9. NEXIUM [Concomitant]
     Active Substance: ESOMEPRAZOLE MAGNESIUM
  10. FAMOTIDINE [Concomitant]
     Active Substance: FAMOTIDINE
  11. TRAZODONE HCL [Concomitant]
     Active Substance: TRAZODONE HYDROCHLORIDE
     Dosage: UNK
     Route: 065
  12. DIPHENHYDRAMINE [Concomitant]
     Active Substance: DIPHENHYDRAMINE
  13. DIPHENHYDRAMINE HYDROCHLORIDE [Concomitant]
     Active Substance: DIPHENHYDRAMINE HYDROCHLORIDE
     Dosage: UNK
     Route: 065
  14. LMX [Concomitant]
  15. FOSAMAX [Concomitant]
     Active Substance: ALENDRONATE SODIUM
  16. FERROUS SULFATE [Concomitant]
     Active Substance: FERROUS SULFATE
  17. IBU [Concomitant]
     Active Substance: IBUPROFEN

REACTIONS (8)
  - Skin cancer [Unknown]
  - Tooth infection [Unknown]
  - Tooth abscess [Unknown]
  - Insurance issue [Unknown]
  - Infusion site swelling [Unknown]
  - Infusion site erythema [Unknown]
  - Incorrect drug administration rate [Unknown]
  - Product use issue [Unknown]
